FAERS Safety Report 15550324 (Version 1)
Quarter: 2018Q4

REPORT INFORMATION
  Report Type: Spontaneous
  Country: RU (occurrence: RU)
  Receive Date: 20181025
  Receipt Date: 20181025
  Transmission Date: 20190205
  Serious: Yes (Life-Threatening, Other)
  Sender: FDA-Public Use
  Company Number: RU-GLAXOSMITHKLINE-RU2018194129

PATIENT
  Age: 39 Year
  Sex: Female

DRUGS (2)
  1. DEXALGIN (DEXKETOPROFEN TROMETAMOL) [Suspect]
     Active Substance: DEXKETOPROFEN TROMETAMOL
     Indication: OSTEOCHONDROSIS
     Dosage: 1 DF, UNK
     Route: 048
     Dates: start: 20170516, end: 20170516
  2. VOLTAREN [Suspect]
     Active Substance: DICLOFENAC SODIUM
     Indication: OSTEOCHONDROSIS
     Dosage: 1 DF, UNK
     Route: 048
     Dates: start: 20170516, end: 20170516

REACTIONS (3)
  - Eyelid oedema [Recovering/Resolving]
  - Pruritus [Recovering/Resolving]
  - Angioedema [Recovering/Resolving]

NARRATIVE: CASE EVENT DATE: 20170516
